FAERS Safety Report 16174284 (Version 1)
Quarter: 2019Q2

REPORT INFORMATION
  Report Type: Spontaneous
  Country: GB (occurrence: GB)
  Receive Date: 20190409
  Receipt Date: 20190409
  Transmission Date: 20190711
  Serious: Yes (Other)
  Sender: FDA-Public Use
  Company Number: PHHY2019GB076253

PATIENT
  Age: 61 Year
  Sex: Male

DRUGS (5)
  1. TIMOPTOL [Concomitant]
     Active Substance: TIMOLOL
     Indication: PRODUCT USED FOR UNKNOWN INDICATION
     Dosage: UNK
     Route: 065
  2. FELODIPINE. [Concomitant]
     Active Substance: FELODIPINE
     Indication: PRODUCT USED FOR UNKNOWN INDICATION
     Dosage: UNK
     Route: 065
  3. ACLASTA [Suspect]
     Active Substance: ZOLEDRONIC ACID
     Dosage: 1 DF, UNK
     Route: 051
     Dates: start: 20190131, end: 20190131
  4. ACLASTA [Suspect]
     Active Substance: ZOLEDRONIC ACID
     Indication: OSTEITIS DEFORMANS
     Dosage: UNK
     Route: 051
  5. LATANOPROST. [Concomitant]
     Active Substance: LATANOPROST
     Indication: PRODUCT USED FOR UNKNOWN INDICATION
     Dosage: UNK
     Route: 065

REACTIONS (6)
  - Eye pain [Recovered/Resolved]
  - Influenza like illness [Unknown]
  - Pyrexia [Unknown]
  - Ocular hyperaemia [Unknown]
  - Chills [Unknown]
  - Eyelid ptosis [Recovered/Resolved]

NARRATIVE: CASE EVENT DATE: 20190101
